FAERS Safety Report 15805002 (Version 1)
Quarter: 2019Q1

REPORT INFORMATION
  Report Type: Spontaneous
  Country: US (occurrence: US)
  Receive Date: 20190110
  Receipt Date: 20190110
  Transmission Date: 20190417
  Serious: No
  Sender: FDA-Public Use
  Company Number: US-TRIS PHARMA, INC.-2018TRISPO01302

PATIENT

DRUGS (2)
  1. DYANAVEL XR [Suspect]
     Active Substance: AMPHETAMINE
     Indication: ATTENTION DEFICIT/HYPERACTIVITY DISORDER
     Dosage: 1 ML PER DAY
     Route: 065
  2. DYANAVEL XR [Suspect]
     Active Substance: AMPHETAMINE
     Dosage: 3 ML (2 ML IN THE AM AND 1 ML AT PM)
     Route: 065

REACTIONS (3)
  - Dermatophagia [Not Recovered/Not Resolved]
  - Drug effect incomplete [Unknown]
  - Wrong technique in product usage process [Unknown]
